FAERS Safety Report 10580663 (Version 1)
Quarter: 2014Q4

REPORT INFORMATION
  Report Type: Spontaneous
  Country: GB (occurrence: GB)
  Receive Date: 20141113
  Receipt Date: 20141113
  Transmission Date: 20150529
  Serious: Yes (Other)
  Sender: FDA-Public Use
  Company Number: GB-AUROBINDO-AUR-APL-2014-11885

PATIENT
  Age: 48 Year
  Sex: Female

DRUGS (3)
  1. FINASTERIDE 5MG [Suspect]
     Active Substance: FINASTERIDE
     Indication: ANTIANDROGEN THERAPY
     Dosage: 5 MG, ONCE A DAY
     Route: 065
  2. ZOLADEX [Suspect]
     Active Substance: GOSERELIN ACETATE
     Indication: ANTIANDROGEN THERAPY
     Dosage: 10.8 MG, UNK
     Route: 065
  3. ESTRADIOL VALERATE. [Suspect]
     Active Substance: ESTRADIOL VALERATE
     Indication: OESTROGEN THERAPY
     Dosage: 6 MG, ONCE A DAY
     Route: 065

REACTIONS (1)
  - Ischaemic stroke [Unknown]
